FAERS Safety Report 9137019 (Version 1)
Quarter: 2013Q1

REPORT INFORMATION
  Report Type: Spontaneous
  Country: US (occurrence: US)
  Receive Date: 20130304
  Receipt Date: 20130304
  Transmission Date: 20140127
  Serious: No
  Sender: FDA-Public Use
  Company Number: US-ABBOTT-12P-163-1017445-00

PATIENT
  Age: 59 None
  Sex: Male
  Weight: 149.82 kg

DRUGS (5)
  1. ANDROGEL [Suspect]
     Indication: OSTEOPOROSIS
     Dosage: PACKETS: MONDAY THROUGH FIRDAY AND OFF SATURDAY AND SUNDAY EACH WEEK
     Route: 061
     Dates: start: 2004, end: 201211
  2. ANDROGEL [Suspect]
     Indication: OSTEOPOROSIS
     Dosage: PUMP: MONDAY THROUGH FRIDAY AND OFF SATURDAY AND SUNDAY EACH WEEK
     Route: 061
     Dates: start: 201211
  3. LASIX [Concomitant]
     Indication: PRODUCT USED FOR UNKNOWN INDICATION
  4. PREDNISONE [Concomitant]
     Indication: SARCOIDOSIS
  5. OXYGEN [Concomitant]
     Indication: PRODUCT USED FOR UNKNOWN INDICATION

REACTIONS (7)
  - Fatigue [Not Recovered/Not Resolved]
  - Local swelling [Not Recovered/Not Resolved]
  - Breast pain [Not Recovered/Not Resolved]
  - Blood testosterone decreased [Unknown]
  - Fatigue [Recovered/Resolved]
  - Palpitations [Unknown]
  - Off label use [Not Recovered/Not Resolved]
